FAERS Safety Report 5139015-7 (Version None)
Quarter: 2006Q4

REPORT INFORMATION
  Report Type: 
  Country: None (occurrence: None)
  Receive Date: 20061030
  Receipt Date: 20060605
  Transmission Date: 20070319
  Serious: No
  Sender: FDA-Public Use
  Company Number: US-GLAXOSMITHKLINE-A0607945A

PATIENT
  Age: 52 Year
  Sex: Female

DRUGS (29)
  1. ADVAIR HFA [Suspect]
     Indication: ASTHMA
     Route: 055
  2. VITAMIN E [Concomitant]
  3. ALEVE [Concomitant]
  4. FEMHRT [Concomitant]
  5. METAMUCIL [Concomitant]
  6. POTASSIUM CHLORIDE [Concomitant]
  7. HYDROCODONE BITARTRATE + ACETAMINOPHEN [Concomitant]
  8. ASACOL [Concomitant]
  9. CARBATROL [Concomitant]
  10. GUAIFENESIN [Concomitant]
  11. GLUCOSAMINE [Concomitant]
  12. CHONDROITIN [Concomitant]
  13. ZONISAMIDE [Concomitant]
  14. CELEBREX [Concomitant]
  15. ZINC MAGNESIUM [Concomitant]
  16. DOCUSATE [Concomitant]
  17. LYSINE [Concomitant]
  18. FEXOFENADINE [Concomitant]
  19. FLONASE [Concomitant]
  20. SINGULAIR [Concomitant]
  21. ASCORBIC ACID [Concomitant]
  22. CRANBERRY [Concomitant]
  23. AZOPT [Concomitant]
  24. ALBUTEROL [Concomitant]
  25. RESTASIS [Concomitant]
  26. ACULAR [Concomitant]
  27. EYE DROPS [Concomitant]
  28. LIDOCAINE [Concomitant]
  29. SUPPOSITORY [Concomitant]

REACTIONS (2)
  - PHARYNGEAL OEDEMA [None]
  - WHEEZING [None]
